FAERS Safety Report 17156816 (Version 1)
Quarter: 2019Q4

REPORT INFORMATION
  Report Type: Spontaneous
  Country: US (occurrence: US)
  Receive Date: 20191216
  Receipt Date: 20191216
  Transmission Date: 20200122
  Serious: Yes (Hospitalization)
  Sender: FDA-Public Use
  Company Number: US-EMCURE PHARMACEUTICALS LTD-2019-EPL-1172

PATIENT
  Age: 33 Year
  Sex: Male

DRUGS (3)
  1. ACETAMINOPHEN. [Suspect]
     Active Substance: ACETAMINOPHEN
     Indication: PAIN
     Dosage: 50 TABLETS OF  500 MG (APAP) OVER TWO DAYS
  2. QUETIAPINE. [Concomitant]
     Active Substance: QUETIAPINE
  3. GABAPENTIN. [Concomitant]
     Active Substance: GABAPENTIN

REACTIONS (7)
  - Tachycardia [Recovered/Resolved]
  - Transaminases increased [Recovered/Resolved]
  - Drug level increased [Recovered/Resolved]
  - Toxicity to various agents [Recovered/Resolved]
  - International normalised ratio increased [Recovered/Resolved]
  - Abdominal pain [Recovered/Resolved]
  - Tachypnoea [Recovered/Resolved]
